FAERS Safety Report 6487254-5 (Version None)
Quarter: 2009Q4

REPORT INFORMATION
  Report Type: 
  Country: None (occurrence: None)
  Receive Date: 20091210
  Receipt Date: 20091202
  Transmission Date: 20100525
  Serious: Yes (Other)
  Sender: FDA-Public Use
  Company Number: US-JNJFOC-20091201765

PATIENT
  Sex: Female
  Weight: 48.54 kg

DRUGS (4)
  1. DURAGESIC-100 [Suspect]
     Indication: PAIN
     Dosage: 48-72 HOUR
     Route: 062
     Dates: start: 20070101, end: 20091118
  2. DURAGESIC-100 [Suspect]
     Dosage: 48-72 HOUR
     Route: 062
     Dates: start: 20091118
  3. HYDROCODONE [Concomitant]
     Indication: PAIN
     Route: 048
  4. SOMA [Concomitant]
     Indication: MUSCLE RELAXANT THERAPY
     Route: 048
     Dates: start: 19890101

REACTIONS (3)
  - FALL [None]
  - INADEQUATE ANALGESIA [None]
  - PAIN [None]
